FAERS Safety Report 4782547-1 (Version None)
Quarter: 2005Q3

REPORT INFORMATION
  Report Type: 
  Country: None (occurrence: None)
  Receive Date: 20050929
  Receipt Date: 20050307
  Transmission Date: 20060218
  Serious: No
  Sender: FDA-Public Use
  Company Number: US-GLAXOSMITHKLINE-A0548620A

PATIENT
  Age: 56 Year
  Sex: Female

DRUGS (5)
  1. COREG [Suspect]
     Dosage: 25MG TWICE PER DAY
     Route: 048
     Dates: start: 20041222
  2. LASIX [Concomitant]
  3. POTASSIUM [Concomitant]
  4. FOLIC ACID [Concomitant]
  5. LANOXIN [Concomitant]

REACTIONS (1)
  - NAIL DISCOLOURATION [None]
